FAERS Safety Report 8008272-1 (Version None)
Quarter: 2011Q4

REPORT INFORMATION
  Report Type: 
  Country: None (occurrence: None)
  Receive Date: 20111227
  Receipt Date: 20111223
  Transmission Date: 20120403
  Serious: Yes (Hospitalization)
  Sender: FDA-Public Use
  Company Number: FR-ROCHE-786588

PATIENT
  Age: 51 Year
  Sex: Male

DRUGS (3)
  1. CLONAZEPAM [Suspect]
     Indication: PAIN
     Dosage: FREQ:  DAILY. DOSE AMOUNT:  2.5 MG/ML
     Route: 048
     Dates: start: 20110526, end: 20110530
  2. IXEL [Interacting]
     Indication: PRODUCT USED FOR UNKNOWN INDICATION
     Route: 048
     Dates: start: 20110516, end: 20110528
  3. TEGRETOL [Interacting]
     Indication: PAIN
     Route: 048
     Dates: start: 20110526, end: 20110530

REACTIONS (8)
  - PRURITUS [None]
  - DERMATITIS BULLOUS [None]
  - RASH MACULO-PAPULAR [None]
  - RASH PUSTULAR [None]
  - LIP OEDEMA [None]
  - CONJUNCTIVITIS [None]
  - EYELID OEDEMA [None]
  - TRANSAMINASES INCREASED [None]
